FAERS Safety Report 7018167-8 (Version None)
Quarter: 2010Q3

REPORT INFORMATION
  Report Type: 
  Country: None (occurrence: None)
  Receive Date: 20100928
  Receipt Date: 20100920
  Transmission Date: 20110219
  Serious: Yes (Other)
  Sender: FDA-Public Use
  Company Number: US-ROCHE-723039

PATIENT
  Sex: Female
  Weight: 56.2 kg

DRUGS (5)
  1. BONIVA [Suspect]
     Indication: OSTEOPOROSIS
     Dosage: DOSE: 3 MG/ML, LAST DOSE RECIEVED ON 12 AUG 2010
     Route: 042
     Dates: start: 20080724
  2. XALATAN [Concomitant]
  3. ALBUTEROL [Concomitant]
     Dosage: FREQUENCY: PRN
  4. CALCIVIT D [Concomitant]
     Dosage: DRUG NAME: CA+D. FREQUENCY: PRN
  5. CARTIA XT [Concomitant]

REACTIONS (3)
  - DIZZINESS [None]
  - HYPOPHOSPHATAEMIA [None]
  - PALPITATIONS [None]
